FAERS Safety Report 15978505 (Version 1)
Quarter: 2019Q1

REPORT INFORMATION
  Report Type: Spontaneous
  Country: BR (occurrence: BR)
  Receive Date: 20190219
  Receipt Date: 20190219
  Transmission Date: 20190418
  Serious: Yes (Hospitalization)
  Sender: FDA-Public Use
  Company Number: BR-BIOGEN-2018BI00661372

PATIENT
  Age: 9 Year
  Sex: Female

DRUGS (3)
  1. SPINRAZA [Suspect]
     Active Substance: NUSINERSEN
     Dosage: EIGHT DOSE
     Route: 065
     Dates: start: 20181031
  2. SPINRAZA [Suspect]
     Active Substance: NUSINERSEN
     Dosage: SEVENTH DOSE
     Route: 065
     Dates: start: 201807
  3. SPINRAZA [Suspect]
     Active Substance: NUSINERSEN
     Indication: SPINAL MUSCULAR ATROPHY
     Dosage: SIXTH DOSE
     Route: 065
     Dates: start: 201803

REACTIONS (8)
  - Muscle rigidity [Not Recovered/Not Resolved]
  - Hypoaesthesia [Unknown]
  - Lordosis [Unknown]
  - Movement disorder [Not Recovered/Not Resolved]
  - Joint dislocation [Not Recovered/Not Resolved]
  - Muscle spasms [Unknown]
  - Arthralgia [Unknown]
  - Scoliosis [Unknown]

NARRATIVE: CASE EVENT DATE: 201805
